FAERS Safety Report 7277264-2 (Version None)
Quarter: 2011Q1

REPORT INFORMATION
  Report Type: 
  Country: None (occurrence: None)
  Receive Date: 20110202
  Receipt Date: 20110202
  Transmission Date: 20110831
  Serious: No
  Sender: FDA-Public Use
  Company Number: None

PATIENT
  Sex: Male

DRUGS (1)
  1. TAMSULOSIN HYDROCHLORIDE [Suspect]
     Dosage: 1 DAILY PO
     Route: 048
     Dates: start: 20101201, end: 20110201

REACTIONS (2)
  - HEADACHE [None]
  - NAUSEA [None]
